FAERS Safety Report 20086602 (Version 1)
Quarter: 2021Q4

REPORT INFORMATION
  Report Type: Spontaneous
  Country: US (occurrence: None)
  Receive Date: 20211118
  Receipt Date: 20211118
  Transmission Date: 20220303
  Serious: Yes (Hospitalization)
  Sender: FDA-Public Use
  Company Number: None

PATIENT
  Age: 20 Year
  Sex: Female

DRUGS (2)
  1. GAMMAGARD LIQUID [Suspect]
     Active Substance: HUMAN IMMUNOGLOBULIN G
     Indication: Neuromyelitis optica spectrum disorder
     Dosage: OTHER QUANTITY : 25GM;?FREQUENCY : DAILY;?
     Route: 042
     Dates: start: 20211115
  2. GAMMAGARD LIQUID [Suspect]
     Active Substance: HUMAN IMMUNOGLOBULIN G
     Indication: Multiple sclerosis

REACTIONS (3)
  - Nausea [None]
  - Vomiting [None]
  - Headache [None]

NARRATIVE: CASE EVENT DATE: 20211116
